FAERS Safety Report 6591858-9 (Version None)
Quarter: 2010Q1

REPORT INFORMATION
  Report Type: 
  Country: None (occurrence: None)
  Receive Date: 20100221
  Receipt Date: 20090610
  Transmission Date: 20100710
  Serious: No
  Sender: FDA-Public Use
  Company Number: US-ALLERGAN-0908087US

PATIENT
  Age: 40 Year
  Sex: Female

DRUGS (1)
  1. BOTOX COSMETIC [Suspect]
     Indication: SKIN WRINKLING
     Dosage: UNK, SINGLE
     Route: 030
     Dates: start: 20090604, end: 20090604

REACTIONS (7)
  - DIZZINESS [None]
  - EYELID OEDEMA [None]
  - EYELID SENSORY DISORDER [None]
  - HEADACHE [None]
  - INJECTION SITE RASH [None]
  - NAUSEA [None]
  - VISION BLURRED [None]
